FAERS Safety Report 11071493 (Version 1)
Quarter: 2015Q2

REPORT INFORMATION
  Report Type: Spontaneous
  Country: US (occurrence: None)
  Receive Date: 20150424
  Receipt Date: 20150424
  Transmission Date: 20150821
  Serious: Yes (Other)
  Sender: FDA-Public Use
  Company Number: 2833231

PATIENT
  Sex: Male

DRUGS (3)
  1. METHOTREXATE [Suspect]
     Active Substance: METHOTREXATE
     Indication: RHEUMATOID ARTHRITIS
     Dosage: 80 IU INTERNATIONAL UNIT(S), 1 WEEK
  2. METHOTREXATE [Suspect]
     Active Substance: METHOTREXATE
     Indication: RHEUMATOID ARTHRITIS
     Dosage: 80 IU INTERNATIONAL UNIT(S), 1 WEEK
  3. METHOTREXATE (METHOTREXATE SODIUM) [Suspect]
     Active Substance: METHOTREXATE SODIUM
     Indication: RHEUMATOID ARTHRITIS
     Dosage: 80 IU INTERNATIONAL UNIT(S), 1 WEEK

REACTIONS (4)
  - Skin hypertrophy [None]
  - Aneurysm [None]
  - Skin fissures [None]
  - Rash macular [None]

NARRATIVE: CASE EVENT DATE: 2015
